FAERS Safety Report 14832415 (Version 1)
Quarter: 2018Q2

REPORT INFORMATION
  Report Type: Spontaneous
  Country: SE (occurrence: SE)
  Receive Date: 20180501
  Receipt Date: 20180501
  Transmission Date: 20180711
  Serious: Yes (Other)
  Sender: FDA-Public Use
  Company Number: SE-BAYER-2018-081378

PATIENT
  Age: 43 Year
  Sex: Female
  Weight: 64 kg

DRUGS (4)
  1. IBUMETIN [Concomitant]
     Active Substance: IBUPROFEN
  2. ALVEDON [Concomitant]
     Active Substance: ACETAMINOPHEN
  3. MIRENA [Suspect]
     Active Substance: LEVONORGESTREL
     Indication: MENSTRUAL DISORDER
     Dosage: 20 MCG/24HR, UNK
     Route: 015
  4. MIRENA [Suspect]
     Active Substance: LEVONORGESTREL
     Indication: MENSTRUAL DISORDER
     Dosage: 20 MCG/24HR, UNK
     Route: 015

REACTIONS (16)
  - Lymphadenopathy [Recovering/Resolving]
  - Uterine pain [Recovering/Resolving]
  - Mood swings [Recovering/Resolving]
  - Vaginal haemorrhage [Recovering/Resolving]
  - Menstrual disorder [Recovering/Resolving]
  - Rash pruritic [Recovering/Resolving]
  - Pain [Recovering/Resolving]
  - Peripheral swelling [Recovering/Resolving]
  - Depressed mood [Recovering/Resolving]
  - Epistaxis [Recovering/Resolving]
  - Fatigue [Recovering/Resolving]
  - Malaise [Recovering/Resolving]
  - Breast tenderness [Recovering/Resolving]
  - Fungal infection [Recovering/Resolving]
  - Mucosal haemorrhage [Recovering/Resolving]
  - Pruritus [Recovering/Resolving]

NARRATIVE: CASE EVENT DATE: 2018
